FAERS Safety Report 8447827-7 (Version None)
Quarter: 2012Q2

REPORT INFORMATION
  Report Type: 
  Country: None (occurrence: None)
  Receive Date: 20120619
  Receipt Date: 20120612
  Transmission Date: 20120825
  Serious: Yes (Other)
  Sender: FDA-Public Use
  Company Number: GB-SANOFI-AVENTIS-2012SA041801

PATIENT
  Age: 53 Year
  Sex: Male
  Weight: 138 kg

DRUGS (9)
  1. LANTUS [Suspect]
     Route: 065
  2. BISOPROLOL FUMARATE [Concomitant]
     Dosage: 2.5 MG, QD
  3. LANTUS [Suspect]
     Indication: TYPE 2 DIABETES MELLITUS
     Dosage: UNK
     Route: 065
  4. VICTOZA [Suspect]
     Indication: TYPE 2 DIABETES MELLITUS
     Dosage: UNK
     Route: 065
     Dates: start: 20090916, end: 20110430
  5. NOVORAPID [Suspect]
     Dosage: CARTRIDGES
     Route: 065
  6. VICTOZA [Suspect]
     Dosage: UNK
     Route: 065
  7. METFORMIN HCL [Concomitant]
     Dosage: 1 G, QD
  8. FENOFIBRATE [Concomitant]
     Dosage: 200 MG, QD
  9. NOVORAPID [Suspect]
     Indication: TYPE 2 DIABETES MELLITUS
     Dosage: CARTRIDGES
     Route: 065

REACTIONS (1)
  - MYOCARDIAL INFARCTION [None]
